FAERS Safety Report 9709221 (Version 1)
Quarter: 2013Q4

REPORT INFORMATION
  Report Type: Spontaneous
  Country: BR (occurrence: BR)
  Receive Date: 20131125
  Receipt Date: 20131125
  Transmission Date: 20140711
  Serious: Yes (Hospitalization, Other)
  Sender: FDA-Public Use
  Company Number: BR-ROXANE LABORATORIES, INC.-2013-RO-01863RO

PATIENT
  Age: 78 Year
  Sex: Female

DRUGS (8)
  1. DEXAMETHASONE [Suspect]
     Dosage: 4 MG
  2. AMLODIPINE [Suspect]
  3. OMEPRAZOLE [Suspect]
  4. TEMOZOLOMIDE [Suspect]
     Indication: GLIOBLASTOMA
     Route: 048
  5. METFORMIN [Suspect]
  6. GLICLAZIDE [Suspect]
  7. SITAGLIPTIN [Suspect]
  8. SULFAMETHOXAZOLE-TRIMETHOPRIM [Suspect]
     Indication: PROPHYLAXIS

REACTIONS (3)
  - Bronchopulmonary aspergillosis [Unknown]
  - Deep vein thrombosis [Unknown]
  - Pulmonary embolism [Unknown]
